FAERS Safety Report 25958011 (Version 1)
Quarter: 2025Q4

REPORT INFORMATION
  Report Type: Report from Study
  Country: US (occurrence: None)
  Receive Date: 20251024
  Receipt Date: 20251024
  Transmission Date: 20260117
  Serious: Yes (Hospitalization)
  Sender: UCB
  Company Number: US-UCBSA-2025066513

PATIENT
  Age: 68 Year

DRUGS (1)
  1. LACOSAMIDE [Suspect]
     Active Substance: LACOSAMIDE
     Indication: Epilepsy
     Dosage: 250 MILLIGRAMS (200MG AND 50MG 1T)), 2X/DAY (BID)

REACTIONS (5)
  - Knee operation [Unknown]
  - Gait inability [Unknown]
  - Blood pressure increased [Unknown]
  - Product use issue [Unknown]
  - Overdose [Unknown]
